FAERS Safety Report 7736585-7 (Version None)
Quarter: 2011Q3

REPORT INFORMATION
  Report Type: 
  Country: None (occurrence: None)
  Receive Date: 20110908
  Receipt Date: 20110203
  Transmission Date: 20111222
  Serious: No
  Sender: FDA-Public Use
  Company Number: US-BAYER-2011-011675

PATIENT
  Age: 51 Year
  Sex: Male

DRUGS (2)
  1. CIPRO [Suspect]
     Indication: ABDOMINAL PAIN UPPER
     Dosage: 500 MG, TABLET
     Route: 048
     Dates: start: 20110126, end: 20110202
  2. METRONIDAZOLE [Concomitant]

REACTIONS (3)
  - ARTHRALGIA [None]
  - BURNING SENSATION [None]
  - MUSCULAR WEAKNESS [None]
